FAERS Safety Report 14329395 (Version 4)
Quarter: 2018Q4

REPORT INFORMATION
  Report Type: Spontaneous
  Country: BR (occurrence: BR)
  Receive Date: 20171227
  Receipt Date: 20181030
  Transmission Date: 20190204
  Serious: Yes (Other)
  Sender: FDA-Public Use
  Company Number: BR-SA-2017SA260719

PATIENT
  Age: 47 Year
  Sex: Female
  Weight: 52 kg

DRUGS (8)
  1. LANTUS [Suspect]
     Active Substance: INSULIN GLARGINE
     Dosage: 10 IU,BID
     Route: 058
     Dates: start: 20171218, end: 20171218
  2. NOVORAPID [Concomitant]
     Active Substance: INSULIN ASPART
     Indication: DIABETES MELLITUS
     Dosage: UNKADMINISTERS ONLY WHEN IS PRESENTING HYPERGLYCEMIA, 3 TO 5 IU, DEPENDING ON HOW MUCH DRYNESS IN TH
     Route: 058
     Dates: start: 1998
  3. LANTUS [Suspect]
     Active Substance: INSULIN GLARGINE
     Indication: DIABETES MELLITUS
     Dosage: 10 IU,BID
     Route: 058
     Dates: start: 200901
  4. OMEPRAZOLE. [Suspect]
     Active Substance: OMEPRAZOLE
     Indication: GASTRIC DISORDER
     Dosage: 1 DF, HS
     Route: 048
  5. SOMALGIN CARDIO [Concomitant]
     Active Substance: ASPIRIN\DIHYDROXYALUMINUM AMINOACETATE ANHYDROUS\MAGNESIUM CARBONATE
     Indication: HYPERTENSION
     Dosage: 1 DF, HS
     Route: 048
  6. LANTUS [Suspect]
     Active Substance: INSULIN GLARGINE
     Dosage: 10 U, BID
     Dates: start: 2008
  7. DIOVAN AMLO [Concomitant]
     Active Substance: AMLODIPINE\VALSARTAN
     Indication: HYPERTENSION
     Dosage: 1 DF, BID
     Route: 048
     Dates: start: 2011
  8. SOMALGIN CARDIO [Concomitant]
     Active Substance: ASPIRIN\DIHYDROXYALUMINUM AMINOACETATE ANHYDROUS\MAGNESIUM CARBONATE
     Indication: ANTICOAGULANT THERAPY

REACTIONS (9)
  - Eye haemorrhage [Recovered/Resolved with Sequelae]
  - Hyperglycaemia [Recovered/Resolved with Sequelae]
  - Off label use [Unknown]
  - Menopause [Not Recovered/Not Resolved]
  - Malaise [Unknown]
  - Chronic kidney disease [Recovering/Resolving]
  - Stress [Unknown]
  - Drug ineffective [Unknown]
  - Intentional product misuse [Unknown]

NARRATIVE: CASE EVENT DATE: 200901
